FAERS Safety Report 23239100 (Version 1)
Quarter: 2023Q4

REPORT INFORMATION
  Report Type: Spontaneous
  Country: CN (occurrence: CN)
  Receive Date: 20231129
  Receipt Date: 20231129
  Transmission Date: 20240109
  Serious: Yes (Other)
  Sender: FDA-Public Use
  Company Number: None

PATIENT
  Age: 55 Year
  Sex: Female

DRUGS (8)
  1. CYCLOPHOSPHAMIDE [Suspect]
     Active Substance: CYCLOPHOSPHAMIDE
     Indication: Chemotherapy
     Dosage: 430 MG, Q12H, D1-3, AS A PART OF HYPER CVAD A REGIMEN
     Route: 041
     Dates: start: 20230305, end: 20230307
  2. MESNA [Suspect]
     Active Substance: MESNA
     Indication: Chemotherapy
     Dosage: UNK, AS A PART OF HYPER CVAD A REGIMEN (START DATE:MAR-2023)
     Route: 065
  3. MESNA [Suspect]
     Active Substance: MESNA
     Indication: Detoxification
  4. VINDESINE [Suspect]
     Active Substance: VINDESINE
     Indication: Chemotherapy
     Dosage: 4 MG, D4, AS A PART OF HYPER CVAD A REGIMEN
     Route: 065
     Dates: start: 20230308
  5. VINDESINE [Suspect]
     Active Substance: VINDESINE
     Dosage: 4 MG, D11, AS A PART OF HYPER CVAD A REGIMEN
     Route: 065
     Dates: start: 20230315
  6. LENVATINIB [Suspect]
     Active Substance: LENVATINIB
     Indication: Chemotherapy
     Dosage: 50 MG, D4, AS A PART OF HYPER CVAD A REGIMEN
     Route: 065
     Dates: start: 20230308
  7. DEXAMETHASONE [Suspect]
     Active Substance: DEXAMETHASONE
     Indication: Chemotherapy
     Dosage: 40 MG, D1-4, AS A PART OF HYPER CVAD A REGIMEN
     Route: 065
     Dates: start: 20230305, end: 20230308
  8. PEGASPARGASE [Suspect]
     Active Substance: PEGASPARGASE
     Indication: Chemotherapy
     Dosage: 3750 IU, D2, AS A PART OF HYPER CVAD A REGIMEN
     Route: 030
     Dates: start: 20230306

REACTIONS (4)
  - Myelosuppression [Recovering/Resolving]
  - White blood cell count decreased [Recovering/Resolving]
  - Neutrophil count decreased [Recovering/Resolving]
  - Platelet count decreased [Recovering/Resolving]

NARRATIVE: CASE EVENT DATE: 20230313
